FAERS Safety Report 13043092 (Version 2)
Quarter: 2016Q4

REPORT INFORMATION
  Report Type: Report from Study
  Country: EG (occurrence: EG)
  Receive Date: 20161219
  Receipt Date: 20161227
  Transmission Date: 20170207
  Serious: Yes (Hospitalization, Other)
  Sender: FDA-Public Use
  Company Number: EG-EMD SERONO-8127087

PATIENT
  Age: 27 Year
  Sex: Female

DRUGS (1)
  1. REBIF [Suspect]
     Active Substance: INTERFERON BETA-1A
     Indication: MULTIPLE SCLEROSIS
     Dates: start: 201610

REACTIONS (3)
  - Coma [Unknown]
  - Fatigue [Unknown]
  - Paralysis [Unknown]

NARRATIVE: CASE EVENT DATE: 2016
